FAERS Safety Report 24545594 (Version 1)
Quarter: 2024Q4

REPORT INFORMATION
  Report Type: Spontaneous
  Country: CN (occurrence: CN)
  Receive Date: 20241024
  Receipt Date: 20241024
  Transmission Date: 20250115
  Serious: Yes (Other)
  Sender: ELI LILLY AND COMPANY
  Company Number: CN-ELI_LILLY_AND_COMPANY-CN202410012650

PATIENT
  Age: 66 Year
  Sex: Male
  Weight: 72.5 kg

DRUGS (3)
  1. HUMULIN N [Suspect]
     Active Substance: INSULIN HUMAN
     Indication: Diabetes mellitus
     Dosage: 21 U, BID
     Route: 058
     Dates: start: 2004
  2. INSULIN GLARGINE [Concomitant]
     Active Substance: INSULIN GLARGINE
     Indication: Product used for unknown indication
  3. SITAGLIPTIN [Concomitant]
     Active Substance: SITAGLIPTIN
     Indication: Product used for unknown indication

REACTIONS (4)
  - Myocardial infarction [Unknown]
  - Cerebral infarction [Unknown]
  - Blood glucose increased [Unknown]
  - Drug ineffective [Unknown]
